FAERS Safety Report 8619949-9 (Version None)
Quarter: 2012Q3

REPORT INFORMATION
  Report Type: 
  Country: None (occurrence: None)
  Receive Date: 20120817
  Receipt Date: 20120817
  Transmission Date: 20120928
  Serious: Yes (Life-Threatening)
  Sender: FDA-Public Use
  Company Number: None

PATIENT
  Age: 30 Year
  Sex: Female
  Weight: 61.2356 kg

DRUGS (1)
  1. RISPERIDONE [Suspect]

REACTIONS (4)
  - FEELING GUILTY [None]
  - TOXICITY TO VARIOUS AGENTS [None]
  - MALNUTRITION [None]
  - SUICIDAL IDEATION [None]
